FAERS Safety Report 17533472 (Version 1)
Quarter: 2020Q1

REPORT INFORMATION
  Report Type: Spontaneous
  Country: IN (occurrence: FR)
  Receive Date: 20200312
  Receipt Date: 20200312
  Transmission Date: 20200409
  Serious: Yes (Hospitalization, Other)
  Sender: FDA-Public Use
  Company Number: FR-ELI_LILLY_AND_COMPANY-FR202003000544

PATIENT
  Age: 84 Year
  Sex: Male

DRUGS (2)
  1. GEMCITABINE HYDROCHLORIDE. [Suspect]
     Active Substance: GEMCITABINE HYDROCHLORIDE
     Indication: TRANSITIONAL CELL CARCINOMA
     Dosage: UNK UNK, UNKNOWN
     Route: 065
  2. CARBOPLATIN. [Suspect]
     Active Substance: CARBOPLATIN
     Indication: TRANSITIONAL CELL CARCINOMA
     Dosage: UNK UNK, UNKNOWN
     Route: 065

REACTIONS (12)
  - Psychiatric decompensation [Recovering/Resolving]
  - Fall [Recovering/Resolving]
  - Off label use [Unknown]
  - Haemolytic uraemic syndrome [Recovering/Resolving]
  - Psychomotor skills impaired [Recovering/Resolving]
  - Decubitus ulcer [Recovering/Resolving]
  - Autonomic nervous system imbalance [Recovering/Resolving]
  - Pyelonephritis [Recovering/Resolving]
  - Apathy [Recovering/Resolving]
  - Asthenia [Recovering/Resolving]
  - Left ventricular failure [Recovering/Resolving]
  - Malnutrition [Recovering/Resolving]
